FAERS Safety Report 5360369-0 (Version None)
Quarter: 2007Q2

REPORT INFORMATION
  Report Type: 
  Country: None (occurrence: None)
  Receive Date: 20070615
  Receipt Date: 20070601
  Transmission Date: 20071010
  Serious: Yes (Other)
  Sender: FDA-Public Use
  Company Number: T200700652

PATIENT
  Age: 46 Year
  Sex: Male
  Weight: 140 kg

DRUGS (1)
  1. LIQUID BAROSPERSE (BARIUM SULFATE) SUSPENSION [Suspect]
     Indication: BARIUM SWALLOW
     Dosage: SINGLE, ORAL
     Route: 048

REACTIONS (5)
  - IMPAIRED HEALING [None]
  - PAIN [None]
  - PERIOSTITIS [None]
  - POOR PERSONAL HYGIENE [None]
  - TOOTH DEPOSIT [None]
